FAERS Safety Report 14269264 (Version 3)
Quarter: 2018Q3

REPORT INFORMATION
  Report Type: Spontaneous
  Country: US (occurrence: US)
  Receive Date: 20171211
  Receipt Date: 20180808
  Transmission Date: 20181010
  Serious: Yes (Hospitalization, Other)
  Sender: FDA-Public Use
  Company Number: US-ASTELLAS-2017US051592

PATIENT
  Age: 6 Month
  Sex: Male

DRUGS (4)
  1. MYCOPHENOLATE MOFETIL. [Concomitant]
     Active Substance: MYCOPHENOLATE MOFETIL
     Indication: HEART TRANSPLANT
     Dosage: UNK UNK, ONCE DAILY (10?15 MG/KG)
     Route: 065
  2. TACROLIMUS SYSTEMIC [Suspect]
     Active Substance: TACROLIMUS
     Indication: HEART TRANSPLANT
     Dosage: 0.14 MG/KG, ONCE DAILY (ADJUSTED TO GOAL SERUM TROUGH 8?10 NG/ML)
     Route: 048
  3. TACROLIMUS SYSTEMIC [Suspect]
     Active Substance: TACROLIMUS
     Dosage: 0.077 MG/KG, ONCE DAILY
     Route: 048
  4. TACROLIMUS SYSTEMIC [Suspect]
     Active Substance: TACROLIMUS
     Dosage: 0.037 UNK, UNK
     Route: 048

REACTIONS (14)
  - DiGeorge^s syndrome [Unknown]
  - Sinusitis [Recovering/Resolving]
  - Staphylococcal infection [Unknown]
  - Dermatitis psoriasiform [Recovering/Resolving]
  - Transplant rejection [Unknown]
  - Off label use [Unknown]
  - Skin disorder [Recovering/Resolving]
  - Otitis media [Recovering/Resolving]
  - Eosinophilia [Unknown]
  - Rash pustular [Recovering/Resolving]
  - Bacterial infection [Recovering/Resolving]
  - Beta haemolytic streptococcal infection [Unknown]
  - Paradoxical drug reaction [Recovering/Resolving]
  - Eczema herpeticum [Recovering/Resolving]
